APPROVED DRUG PRODUCT: VERDESO
Active Ingredient: DESONIDE
Strength: 0.05%
Dosage Form/Route: AEROSOL, FOAM;TOPICAL
Application: N021978 | Product #001
Applicant: ALMIRALL LLC
Approved: Sep 19, 2006 | RLD: Yes | RS: No | Type: DISCN

PATENTS:
Patent 8460641 | Expires: Aug 13, 2027